FAERS Safety Report 5032494-5 (Version None)
Quarter: 2006Q2

REPORT INFORMATION
  Report Type: 
  Country: None (occurrence: None)
  Receive Date: 20060621
  Receipt Date: 20060621
  Transmission Date: 20061013
  Serious: Yes (Other)
  Sender: FDA-Public Use
  Company Number: None

PATIENT
  Age: 1 Year
  Sex: Male
  Weight: 7.1668 kg

DRUGS (10)
  1. SYNAGIS [Suspect]
     Indication: DIGEORGE'S SYNDROME
     Dosage: 15MG/KG IM Q MONTH
     Route: 030
     Dates: start: 20050901
  2. SYNAGIS [Suspect]
     Indication: DIGEORGE'S SYNDROME
     Dosage: 15MG/KG IM Q MONTH
     Route: 030
     Dates: start: 20051001
  3. SYNAGIS [Suspect]
     Indication: DIGEORGE'S SYNDROME
     Dosage: 15MG/KG IM Q MONTH
     Route: 030
     Dates: start: 20051101
  4. SYNAGIS [Suspect]
     Indication: DIGEORGE'S SYNDROME
     Dosage: 15MG/KG IM Q MONTH
     Route: 030
     Dates: start: 20051201
  5. SYNAGIS [Suspect]
     Indication: DIGEORGE'S SYNDROME
     Dosage: 15MG/KG IM Q MONTH
     Route: 030
     Dates: start: 20060201
  6. SYNAGIS [Suspect]
     Indication: DIGEORGE'S SYNDROME
     Dosage: 15MG/KG IM Q MONTH
     Route: 030
     Dates: start: 20060301
  7. SYNAGIS [Suspect]
     Indication: DIGEORGE'S SYNDROME
     Dosage: 15MG/KG IM Q MONTH
     Route: 030
     Dates: start: 20060401
  8. SYNAGIS [Suspect]
  9. SYNAGIS [Suspect]
  10. SYNAGIS [Suspect]

REACTIONS (2)
  - DIARRHOEA [None]
  - VOMITING [None]
